FAERS Safety Report 5895260-4 (Version None)
Quarter: 2008Q3

REPORT INFORMATION
  Report Type: 
  Country: None (occurrence: None)
  Receive Date: 20080924
  Receipt Date: 20080918
  Transmission Date: 20090109
  Serious: Yes (Other)
  Sender: FDA-Public Use
  Company Number: B0538454A

PATIENT
  Age: 65 Year
  Sex: Male

DRUGS (1)
  1. ZELITREX [Suspect]
     Indication: HERPES SIMPLEX
     Dosage: 1000MG PER DAY
     Route: 065

REACTIONS (3)
  - LEUKOPENIA [None]
  - NEUTROPENIA [None]
  - OVERDOSE [None]
